FAERS Safety Report 4682775-X (Version None)
Quarter: 2005Q2

REPORT INFORMATION
  Report Type: 
  Country: None (occurrence: None)
  Receive Date: 20050602
  Receipt Date: 20050419
  Transmission Date: 20051028
  Serious: No
  Sender: FDA-Public Use
  Company Number: USA050496070

PATIENT
  Age: 43 Year
  Sex: Female
  Weight: 100 kg

DRUGS (2)
  1. CYMBALTA [Suspect]
     Indication: DEPRESSION
     Dosage: 20 MG DAY
     Dates: start: 20050303
  2. KLONOPIN [Concomitant]

REACTIONS (6)
  - ANXIETY [None]
  - BURNING SENSATION [None]
  - FEELING JITTERY [None]
  - HEADACHE [None]
  - NAUSEA [None]
  - VOMITING [None]
